FAERS Safety Report 6335261-5 (Version None)
Quarter: 2009Q3

REPORT INFORMATION
  Report Type: 
  Country: None (occurrence: None)
  Receive Date: 20090831
  Receipt Date: 20090827
  Transmission Date: 20100115
  Serious: Yes (Hospitalization)
  Sender: FDA-Public Use
  Company Number: JP-MERCK-0906USA01954

PATIENT
  Age: 66 Year
  Sex: Male
  Weight: 59 kg

DRUGS (9)
  1. HYZAAR [Suspect]
     Indication: HYPERTENSION
     Route: 048
     Dates: start: 20090319, end: 20090528
  2. TAKEPRON [Concomitant]
     Route: 048
     Dates: start: 20080407
  3. LIPITOR [Concomitant]
     Route: 048
     Dates: start: 20080407
  4. AMARYL [Concomitant]
     Route: 048
     Dates: start: 20080925, end: 20090605
  5. ZYLORIC [Concomitant]
     Route: 048
     Dates: start: 20080407
  6. CITRIC ACID AND POTASSIUM CITRATE AND SODIUM CITRATE [Concomitant]
     Route: 048
     Dates: start: 20080731
  7. CARNACULIN [Concomitant]
     Route: 048
  8. METHYCOBAL [Concomitant]
     Route: 048
  9. DEPAS [Concomitant]
     Route: 048

REACTIONS (2)
  - PHOTOSENSITIVITY REACTION [None]
  - RHABDOMYOLYSIS [None]
